FAERS Safety Report 8455321-2 (Version None)
Quarter: 2012Q2

REPORT INFORMATION
  Report Type: 
  Country: None (occurrence: None)
  Receive Date: 20120621
  Receipt Date: 20120619
  Transmission Date: 20120825
  Serious: Yes (Other)
  Sender: FDA-Public Use
  Company Number: AU-PFIZER INC-2012146723

PATIENT
  Age: 49 Year
  Sex: Female

DRUGS (1)
  1. VARENICLINE TARTRATE [Suspect]
     Indication: SMOKING CESSATION THERAPY
     Dosage: 0.5 MG, 2X/DAY
     Route: 048
     Dates: start: 20120602, end: 20120601

REACTIONS (5)
  - OESOPHAGEAL STENOSIS [None]
  - VOMITING [None]
  - NAUSEA [None]
  - NEUROPATHY PERIPHERAL [None]
  - DEPRESSION [None]
